FAERS Safety Report 5679731-1 (Version None)
Quarter: 2008Q1

REPORT INFORMATION
  Report Type: 
  Country: None (occurrence: None)
  Receive Date: 20080324
  Receipt Date: 20080310
  Transmission Date: 20080703
  Serious: Yes (Other)
  Sender: FDA-Public Use
  Company Number: B0513229A

PATIENT
  Sex: 0

DRUGS (2)
  1. TOPETECAN HYDROCHLORIDE INFUSION (GENERIC) (TOPOTECAN) [Suspect]
     Dosage: .2 MG/M2 / PER DAY / INTRAVENOUS
     Route: 042
  2. OXALIPLATIN [Suspect]
     Dosage: 85 MG/M2 / CYCLIC / INTRAVENOUS
     Route: 042

REACTIONS (1)
  - NEUROPATHY PERIPHERAL [None]
